FAERS Safety Report 23104993 (Version 3)
Quarter: 2024Q1

REPORT INFORMATION
  Report Type: Spontaneous
  Country: BR (occurrence: BR)
  Receive Date: 20231025
  Receipt Date: 20240122
  Transmission Date: 20240410
  Serious: Yes (Other)
  Sender: FDA-Public Use
  Company Number: BR-AMERICAN REGENT INC-2023002474

PATIENT
  Sex: Female
  Weight: 103 kg

DRUGS (5)
  1. VENOFER [Suspect]
     Active Substance: IRON SUCROSE
     Indication: Anaemia
     Dosage: DOSAGE: 3 BOXES  DOSAGE DEPENDS ON THE IRON AND HEMOGLOBIN LEVELS(1 IN 3 M)
     Dates: start: 2018
  2. VENOFER [Suspect]
     Active Substance: IRON SUCROSE
     Dosage: DOSAGE: 4 BOXES, 2 AMPOULES, ON ALTERNATE DAYS (ONCE EVERY OTHER DAY) UNTIL A TOTAL OF 20 AMPOULES.
  3. AMLODIPINE [Concomitant]
     Active Substance: AMLODIPINE BESYLATE
     Indication: Hypertension
     Dosage: 1 TABLET DAILY, ONGOING (1 DOSAGE FORM, 1 IN 1 D)
     Route: 048
     Dates: start: 2019
  4. INDAPAMIDE [Concomitant]
     Active Substance: INDAPAMIDE
     Indication: Hypertension
     Dosage: 1 TABLET IN THE MORNING AND 1 TABLET IN THE EVENING, ONGOING (1 DOSAGE FORM, 2 IN 1 D)
     Route: 048
     Dates: start: 2019
  5. HYDROCHLOROTHIAZIDE\LOSARTAN POTASSIUM [Concomitant]
     Active Substance: HYDROCHLOROTHIAZIDE\LOSARTAN POTASSIUM
     Indication: Hypertension
     Dosage: 1 TABLET IN THE MORNING AND 1 TABLET IN THE EVENING, ONGOING (1 DOSAGE FORM, 2 IN 1 D)
     Route: 048
     Dates: start: 2008

REACTIONS (1)
  - Diabetes mellitus [Not Recovered/Not Resolved]

NARRATIVE: CASE EVENT DATE: 20210101
